FAERS Safety Report 6642773-3 (Version None)
Quarter: 2010Q1

REPORT INFORMATION
  Report Type: 
  Country: None (occurrence: None)
  Receive Date: 20100319
  Receipt Date: 20100312
  Transmission Date: 20100710
  Serious: Yes (Disabling)
  Sender: FDA-Public Use
  Company Number: CA-GENENTECH-299291

PATIENT
  Age: 61 Year
  Sex: Female

DRUGS (10)
  1. RITUXAN [Suspect]
     Indication: NON-HODGKIN'S LYMPHOMA
     Dosage: UNK
     Route: 042
     Dates: start: 20071101
  2. RITUXAN [Suspect]
     Dosage: 654 MG, Q3M
     Route: 042
     Dates: end: 20091101
  3. BIAXIN [Suspect]
     Indication: DRUG USE FOR UNKNOWN INDICATION
     Dosage: UNK
     Route: 065
     Dates: start: 20091112
  4. CLAVULIN [Concomitant]
     Indication: DRUG USE FOR UNKNOWN INDICATION
     Dosage: UNK
     Dates: start: 20090101
  5. CALCIUM [Concomitant]
     Indication: DRUG USE FOR UNKNOWN INDICATION
     Dosage: UNK
  6. VITAMINE D [Concomitant]
     Indication: DRUG USE FOR UNKNOWN INDICATION
     Dosage: UNK
  7. CYCLOPHOSPHAMIDE [Concomitant]
     Indication: NON-HODGKIN'S LYMPHOMA
     Dosage: UNK
  8. DOXORUBICIN [Concomitant]
     Indication: NON-HODGKIN'S LYMPHOMA
  9. PREDNISONE [Concomitant]
     Indication: NON-HODGKIN'S LYMPHOMA
  10. VINCRISTINE [Concomitant]
     Indication: NON-HODGKIN'S LYMPHOMA

REACTIONS (2)
  - DEAFNESS [None]
  - OEDEMA PERIPHERAL [None]
